FAERS Safety Report 17583130 (Version 1)
Quarter: 2020Q1

REPORT INFORMATION
  Report Type: Spontaneous
  Country: GB (occurrence: GB)
  Receive Date: 20200325
  Receipt Date: 20200325
  Transmission Date: 20200409
  Serious: Yes (Hospitalization, Other)
  Sender: FDA-Public Use
  Company Number: GB-ALEXION-A202003973

PATIENT
  Sex: Male

DRUGS (1)
  1. SOLIRIS [Suspect]
     Active Substance: ECULIZUMAB
     Indication: PRODUCT USED FOR UNKNOWN INDICATION
     Dosage: UNK, Q2W
     Route: 065

REACTIONS (11)
  - Contusion [Unknown]
  - Blood creatinine increased [Unknown]
  - Arthralgia [Unknown]
  - Decreased appetite [Unknown]
  - Enteritis infectious [Unknown]
  - Pain [Unknown]
  - Vomiting [Unknown]
  - Vein collapse [Unknown]
  - Nausea [Unknown]
  - Haemodialysis [Unknown]
  - Immunodeficiency [Unknown]
